FAERS Safety Report 7679139-3 (Version None)
Quarter: 2011Q3

REPORT INFORMATION
  Report Type: 
  Country: None (occurrence: None)
  Receive Date: 20110812
  Receipt Date: 20110729
  Transmission Date: 20111222
  Serious: Yes (Hospitalization)
  Sender: FDA-Public Use
  Company Number: US-ELI_LILLY_AND_COMPANY-US201008005873

PATIENT
  Sex: Male

DRUGS (2)
  1. FORTEO [Suspect]
     Indication: OSTEOPOROSIS
     Dosage: 20 UG, DAILY (1/D)
     Dates: start: 20100528
  2. FORTEO [Suspect]
     Dosage: 20 UG, QD

REACTIONS (5)
  - BACK PAIN [None]
  - MUSCLE SPASMS [None]
  - FATIGUE [None]
  - CHOLELITHIASIS [None]
  - FEELING ABNORMAL [None]
